FAERS Safety Report 9907561 (Version 2)
Quarter: 2014Q1

REPORT INFORMATION
  Report Type: Report from Study
  Country: KR (occurrence: KR)
  Receive Date: 20140218
  Receipt Date: 20140218
  Transmission Date: 20141002
  Serious: Yes (Hospitalization)
  Sender: FDA-Public Use
  Company Number: KR-009507513-1108KOR00042

PATIENT
  Age: 47 Year
  Sex: Female
  Weight: 52.8 kg

DRUGS (2)
  1. SITAGLIPTIN PHOSPHATE (+) METFORMIN HYDROCHLORIDE [Suspect]
     Indication: DIABETES MELLITUS
     Dosage: 50/1000MG, BID
     Route: 048
     Dates: start: 20110413, end: 20110624
  2. SITAGLIPTIN PHOSPHATE (+) METFORMIN HYDROCHLORIDE [Suspect]
     Dosage: 50/1000MG, BID
     Route: 048
     Dates: start: 20110627

REACTIONS (1)
  - Cartilage injury [Recovered/Resolved]
